FAERS Safety Report 7228944-6 (Version None)
Quarter: 2011Q1

REPORT INFORMATION
  Report Type: 
  Country: None (occurrence: None)
  Receive Date: 20110117
  Receipt Date: 20110110
  Transmission Date: 20110831
  Serious: Yes (Other)
  Sender: FDA-Public Use
  Company Number: US-SANOFI-AVENTIS-2011SA002063

PATIENT
  Age: 57 Year
  Sex: Female

DRUGS (1)
  1. ARAVA [Suspect]
     Indication: ARTHRITIS
     Route: 048
     Dates: start: 20100701

REACTIONS (5)
  - BLINDNESS [None]
  - ASTHENIA [None]
  - PAIN IN EXTREMITY [None]
  - TRANSIENT ISCHAEMIC ATTACK [None]
  - FATIGUE [None]
